FAERS Safety Report 10678231 (Version 1)
Quarter: 2014Q4

REPORT INFORMATION
  Report Type: Spontaneous
  Country: US (occurrence: None)
  Receive Date: 20141223
  Receipt Date: 20141223
  Transmission Date: 20150529
  Serious: Yes (Hospitalization, Other)
  Sender: FDA-Public Use
  Company Number: US2014GSK038249

PATIENT
  Age: 70 Year
  Sex: Female

DRUGS (6)
  1. LEVOTHYROXINE [Concomitant]
     Active Substance: LEVOTHYROXINE
  2. HUMIRA [Suspect]
     Active Substance: ADALIMUMAB
     Indication: PSORIASIS
     Route: 058
  3. SPIRONOLACTON [Concomitant]
     Active Substance: SPIRONOLACTONE
  4. TUMS [Suspect]
     Active Substance: CALCIUM CARBONATE
     Indication: PRODUCT USED FOR UNKNOWN INDICATION
     Route: 048
  5. PANTOPRAZOLE [Concomitant]
     Active Substance: PANTOPRAZOLE SODIUM
  6. IBUPROFEN. [Concomitant]
     Active Substance: IBUPROFEN

REACTIONS (9)
  - Abasia [None]
  - Wrong technique in drug usage process [None]
  - Syringe issue [None]
  - Product quality issue [None]
  - Overdose [None]
  - Muscular weakness [None]
  - Injection site pain [None]
  - Incorrect dose administered [None]
  - Alopecia [None]

NARRATIVE: CASE EVENT DATE: 20141013
